FAERS Safety Report 22246899 (Version 2)
Quarter: 2023Q2

REPORT INFORMATION
  Report Type: Spontaneous
  Country: US (occurrence: US)
  Receive Date: 20230424
  Receipt Date: 20230426
  Transmission Date: 20230721
  Serious: No
  Sender: FDA-Public Use
  Company Number: US-002147023-NVSC2023US093111

PATIENT

DRUGS (2)
  1. RYDAPT [Suspect]
     Active Substance: MIDOSTAURIN
     Indication: Product used for unknown indication
     Dosage: UNK
     Route: 065
  2. POSACONAZOLE [Suspect]
     Active Substance: POSACONAZOLE
     Indication: Antifungal treatment
     Dosage: UNK
     Route: 065

REACTIONS (1)
  - Contraindicated product administered [Unknown]
